FAERS Safety Report 13089791 (Version 1)
Quarter: 2017Q1

REPORT INFORMATION
  Report Type: Spontaneous
  Country: US (occurrence: US)
  Receive Date: 20170105
  Receipt Date: 20170105
  Transmission Date: 20170428
  Serious: Yes (Life-Threatening, Hospitalization, Other)
  Sender: FDA-Public Use
  Company Number: US-ALLERGAN-1700298US

PATIENT
  Sex: Male
  Weight: 2.6 kg

DRUGS (2)
  1. ESCITALOPRAM OXALATE - BP [Suspect]
     Active Substance: ESCITALOPRAM OXALATE
     Indication: PRODUCT USED FOR UNKNOWN INDICATION
     Dosage: 30 MG, QD
     Route: 064
  2. BUPROPION. [Suspect]
     Active Substance: BUPROPION
     Indication: PRODUCT USED FOR UNKNOWN INDICATION
     Dosage: 200 MG, QD
     Route: 064

REACTIONS (21)
  - Necrotising colitis [Unknown]
  - Hypothermia [Unknown]
  - Polycythaemia [Unknown]
  - Hypocalcaemia [Unknown]
  - Gastrointestinal disorder [Unknown]
  - Irritability [Recovering/Resolving]
  - Hypoglycaemia [Unknown]
  - Hypertonia [Unknown]
  - Vomiting [Unknown]
  - Drug withdrawal syndrome neonatal [Unknown]
  - Haematochezia [Unknown]
  - Functional gastrointestinal disorder [Unknown]
  - Leukopenia [Unknown]
  - Hyponatraemia [Unknown]
  - Gastrointestinal necrosis [Unknown]
  - C-reactive protein increased [Unknown]
  - Tremor [Recovering/Resolving]
  - Thrombocytopenia [Unknown]
  - Pneumatosis [Unknown]
  - Foetal exposure during pregnancy [Unknown]
  - Abdominal distension [Unknown]
